FAERS Safety Report 5916943-3 (Version None)
Quarter: 2008Q4

REPORT INFORMATION
  Report Type: 
  Country: None (occurrence: None)
  Receive Date: 20081009
  Receipt Date: 20080926
  Transmission Date: 20090506
  Serious: Yes (Hospitalization)
  Sender: FDA-Public Use
  Company Number: 2008002378

PATIENT
  Sex: Female
  Weight: 54.8 kg

DRUGS (2)
  1. ERLOTINIB (ERLOTINIB) (TABLET) (ERLOTINIB) [Suspect]
     Indication: GLIOBLASTOMA MULTIFORME
     Dosage: (100 MG, QD), ORAL
     Route: 048
     Dates: start: 20080814
  2. SORAFENIB [Suspect]
     Indication: GLIOBLASTOMA MULTIFORME
     Dosage: 9200 MG, BID), ORAL
     Route: 048
     Dates: start: 20080814

REACTIONS (7)
  - CEREBRAL DISORDER [None]
  - CONVULSION [None]
  - HEADACHE [None]
  - INTRACRANIAL TUMOUR HAEMORRHAGE [None]
  - MUSCLE TWITCHING [None]
  - NAUSEA [None]
  - VOMITING [None]
